FAERS Safety Report 23219670 (Version 2)
Quarter: 2024Q1

REPORT INFORMATION
  Report Type: Spontaneous
  Country: US (occurrence: US)
  Receive Date: 20231122
  Receipt Date: 20240227
  Transmission Date: 20240410
  Serious: No
  Sender: FDA-Public Use
  Company Number: US-AVADEL CNS PHARMACEUTICALS, LLC-2023AVA00323

PATIENT

DRUGS (2)
  1. LUMRYZ [Suspect]
     Active Substance: SODIUM OXYBATE
     Dosage: 7.5
     Dates: start: 202308, end: 2023
  2. LUMRYZ [Suspect]
     Active Substance: SODIUM OXYBATE
     Dosage: UNK
     Dates: start: 2023

REACTIONS (17)
  - Dehydration [Recovering/Resolving]
  - Blood pressure decreased [Unknown]
  - Cough [Unknown]
  - Oropharyngeal pain [Unknown]
  - Thirst [Unknown]
  - Pollakiuria [Recovering/Resolving]
  - Renal disorder [Recovering/Resolving]
  - Dyspnoea [Recovered/Resolved]
  - Middle insomnia [Recovered/Resolved]
  - Terminal insomnia [Recovered/Resolved]
  - Therapeutic product effect incomplete [Unknown]
  - Nocturia [Recovered/Resolved]
  - Hyperhidrosis [Unknown]
  - Vomiting [Recovered/Resolved]
  - Somnolence [Not Recovered/Not Resolved]
  - Tremor [Recovered/Resolved]
  - Unevaluable event [Recovering/Resolving]

NARRATIVE: CASE EVENT DATE: 20230101
